FAERS Safety Report 15111951 (Version 3)
Quarter: 2018Q3

REPORT INFORMATION
  Report Type: Spontaneous
  Country: BG (occurrence: BG)
  Receive Date: 20180705
  Receipt Date: 20180803
  Transmission Date: 20181010
  Serious: Yes (Other)
  Sender: FDA-Public Use
  Company Number: BG-MYLANLABS-2018M1047186

PATIENT
  Age: 67 Year
  Sex: Male

DRUGS (7)
  1. MITOXANTRONE [Suspect]
     Active Substance: MITOXANTRONE HYDROCHLORIDE
     Indication: PROSTATE CANCER
     Dosage: UNK
     Route: 042
  2. BICALUTAMIDE. [Suspect]
     Active Substance: BICALUTAMIDE
     Indication: PROSTATE CANCER
     Dosage: 50 MG, QD
     Route: 042
  3. DOCETAXEL. [Suspect]
     Active Substance: DOCETAXEL
     Indication: PROSTATE CANCER
     Dosage: IT STARTS AFTER A NEW TUMOR MARKER RISES
     Route: 042
  4. RADIUM RA 223 DICHLORIDE [Suspect]
     Active Substance: RADIUM RA-223 DICHLORIDE
     Indication: PROSTATE CANCER
     Dosage: 4 INTRAVENOUS APPLICATIONS WITH A TOTAL APPLICATIVE ACTIVITY OF 39.6 MBQ / 55 KBQ / KG
     Route: 042
  5. RADIUM RA 223 DICHLORIDE [Suspect]
     Active Substance: RADIUM RA-223 DICHLORIDE
     Dosage: TOTAL OF 35.2 MBQ (55 KBQ / KG) AND AN AVERAGE OF 8.8 MBQ OF APPLICATION
  6. ENZALUTAMIDE [Suspect]
     Active Substance: ENZALUTAMIDE
     Indication: PROSTATE CANCER
     Dosage: 160 MG, QD, ER INEFFECTIVE TREATMENT, A NEW GENERATION IS INCLUDED ANTIANDROGEN.
     Route: 042
  7. DENOSUMAB [Suspect]
     Active Substance: DENOSUMAB
     Indication: PROSTATE CANCER
     Dosage: USED AS INITIAL TREATMENT
     Route: 042

REACTIONS (6)
  - Anaemia [Recovered/Resolved]
  - Prostate cancer [Unknown]
  - Drug ineffective [Unknown]
  - Thrombocytopenia [Recovered/Resolved]
  - Malignant neoplasm progression [Unknown]
  - Prostate cancer recurrent [Unknown]
